FAERS Safety Report 15109605 (Version 1)
Quarter: 2018Q2

REPORT INFORMATION
  Report Type: Spontaneous
  Country: US (occurrence: US)
  Receive Date: 20180611
  Receipt Date: 20180611
  Transmission Date: 20180711
  Serious: No
  Sender: FDA-Public Use
  Company Number: None

PATIENT
  Age: 53 Year
  Sex: Female
  Weight: 762.27 kg

DRUGS (13)
  1. PROGESTERONE 200MG CAPSULE. BEIGE, OVAL SHAPED CAPSULE - AK2 [Suspect]
     Active Substance: PROGESTERONE
     Indication: MENOPAUSAL SYMPTOMS
     Dosage: ?          QUANTITY:1 DF DOSAGE FORM;?
     Route: 048
     Dates: start: 20180519, end: 20180611
  2. TYLENOL EXTRA STRENGTH [Concomitant]
     Active Substance: ACETAMINOPHEN
  3. ESTRADIOL CREAM (GENERIC) [Concomitant]
  4. VITAMIN D [Concomitant]
     Active Substance: CHOLECALCIFEROL
  5. TRAMADOL (GENERIC) [Concomitant]
  6. RIZATRIPTAN (GENERIC) [Concomitant]
  7. VITAMIN C [Concomitant]
     Active Substance: ASCORBIC ACID
  8. BACLOFEN. [Concomitant]
     Active Substance: BACLOFEN
  9. VITAMIN B12 [Concomitant]
     Active Substance: CYANOCOBALAMIN
  10. FEXOFENADINE ( GENERIC) [Concomitant]
  11. EFFEXOR (GENERIC) [Concomitant]
  12. VOLTAREN [Concomitant]
     Active Substance: DICLOFENAC SODIUM
  13. CYMBALTA ( GENERIC) [Concomitant]

REACTIONS (4)
  - Hot flush [None]
  - Night sweats [None]
  - Product substitution issue [None]
  - Drug ineffective [None]

NARRATIVE: CASE EVENT DATE: 20180521
